FAERS Safety Report 14012188 (Version 3)
Quarter: 2019Q2

REPORT INFORMATION
  Report Type: Spontaneous
  Country: US (occurrence: US)
  Receive Date: 20170926
  Receipt Date: 20190529
  Transmission Date: 20190711
  Serious: Yes (Death, Hospitalization, Other)
  Sender: FDA-Public Use
  Company Number: US-PFIZER INC-2016506323

PATIENT
  Age: 76 Year
  Sex: Male
  Weight: 89.98 kg

DRUGS (23)
  1. SUTENT [Suspect]
     Active Substance: SUNITINIB MALATE
     Indication: RENAL CELL CARCINOMA
     Dosage: 37.5 MG, CYCLIC (ONCE A DAY FOR 4 WEEKS THEN OFF FOR 2 WEEKS)
     Route: 048
     Dates: start: 20160108, end: 201706
  2. SUTENT [Suspect]
     Active Substance: SUNITINIB MALATE
     Dosage: 37.5 MG, CYCLIC (ONCE A DAY, FOR 4 WEEKS THEN OFF FOR 2 WEEKS)
     Route: 048
     Dates: start: 20190430
  3. ACETAMINOPHEN. [Concomitant]
     Active Substance: ACETAMINOPHEN
     Indication: PYREXIA
  4. ASPIRIN. [Concomitant]
     Active Substance: ASPIRIN
     Dosage: 162.5 MG, 1X/DAY (325 MG, 1/2 TABLET)
     Route: 048
  5. NATURAL FISH OIL [Concomitant]
     Dosage: 1 DF, 2X/DAY
     Route: 048
  6. CRESTOR [Concomitant]
     Active Substance: ROSUVASTATIN CALCIUM
     Dosage: 40 MG, 1X/DAY[1 TABLET (S) (40 MG) BY MOUTH DAILY AT BEDTIME]
     Route: 048
  7. TERAZOSIN [Concomitant]
     Active Substance: TERAZOSIN\TERAZOSIN HYDROCHLORIDE
     Dosage: 5 MG, 1X/DAY[1 CAPSULE (S) (5 MG) BY MOUTH DAILY AT BED TIME]
     Route: 048
  8. CINNAMON. [Concomitant]
     Active Substance: CINNAMON
     Dosage: 500 MG, 2X/DAY
     Route: 048
  9. ARANESP POLYSORBATE [Concomitant]
     Dosage: UNK (AS DIRECTED BY ONCOLOGY)
  10. LECITHIN [Concomitant]
     Active Substance: LECITHIN
     Dosage: 1200 MG, 2X/DAY
     Route: 048
  11. TRAVATAN Z [Concomitant]
     Active Substance: TRAVOPROST
     Dosage: 2 GTT (0.004 %), 1X/DAY [1 DROP (S) IN BOTH EYES DAILY AT BEDTIME]
     Route: 047
  12. SUTENT [Suspect]
     Active Substance: SUNITINIB MALATE
     Indication: PROSTATE CANCER
     Dosage: 50 MG, CYCLIC (1 DAILY FOR 3 WEEKS, OFF ONE WEEK]
     Route: 048
  13. SUTENT [Suspect]
     Active Substance: SUNITINIB MALATE
     Dosage: UNK
     Route: 048
     Dates: start: 20190430
  14. CALCITRIOL. [Concomitant]
     Active Substance: CALCITRIOL
     Dosage: 0.25 UG, 1X/DAY [1 CAPSULE (S) (0.25 MCG) BY MOUTH ONCE DAILY, STOP IF YOU GET SENSIPER]
     Route: 048
  15. LISINOPRIL. [Concomitant]
     Active Substance: LISINOPRIL
     Dosage: 20 MG, 1X/DAY [1/2 TABLET (S) (20 MG) BY MOUTH ONCE DAILY DO NOT TAKE IF HAVING A SICK DAY]
     Route: 048
  16. ALLOPURINOL. [Concomitant]
     Active Substance: ALLOPURINOL
     Dosage: 300 MG, 1X/DAY[1 TABLET (S) (300 MG) BY MOUTH ONCE DAILY IN THE MORNING]
     Route: 048
  17. GARLIC. [Concomitant]
     Active Substance: GARLIC
     Dosage: 500 MG, 2X/DAY
     Route: 048
  18. ACETAMINOPHEN. [Concomitant]
     Active Substance: ACETAMINOPHEN
     Indication: PAIN
     Dosage: 650 MG, AS NEEDED [325 MG, 2 TABLET(S) (650 MG) BY MOUTH EVERY FOUR HOURS AS NEEDED]
     Route: 048
  19. NIFEDIPINE. [Concomitant]
     Active Substance: NIFEDIPINE
     Dosage: 30 MG, 2X/DAY
     Route: 048
  20. SENSIPAR [Concomitant]
     Active Substance: CINACALCET HYDROCHLORIDE
     Dosage: 30 MG, 1X/DAY
     Route: 048
  21. IMODIUM A-D [Concomitant]
     Active Substance: LOPERAMIDE HYDROCHLORIDE
     Dosage: 2 MG, AS NEEDED[1 TABLET (S) (2 MG) BY MOUTH AS NEEDED]
     Route: 048
  22. FUROSEMIDE. [Concomitant]
     Active Substance: FUROSEMIDE
     Dosage: 40 MG, 1X/DAY[DAILY IN THE MORNING]
     Route: 048
  23. LABETALOL [Concomitant]
     Active Substance: LABETALOL\LABETALOL HYDROCHLORIDE
     Dosage: 250 MG, DAILY (1.5 TABLET IN THE A.M. AND 1 TABLET IN THE P.M)
     Route: 048

REACTIONS (4)
  - Death [Fatal]
  - Haematuria [Unknown]
  - Onycholysis [Unknown]
  - Peripheral swelling [Unknown]

NARRATIVE: CASE EVENT DATE: 2017
